FAERS Safety Report 12630558 (Version 1)
Quarter: 2016Q3

REPORT INFORMATION
  Report Type: Spontaneous
  Country: US (occurrence: US)
  Receive Date: 20160808
  Receipt Date: 20160808
  Transmission Date: 20161109
  Serious: Yes (Other)
  Sender: FDA-Public Use
  Company Number: US-NAPPMUNDI-USA-2016-0132638

PATIENT
  Sex: Female

DRUGS (2)
  1. MORPHINE SULFATE EXTENDED-RELEASE TABLETS (RHODES 74-769, 74-862) [Suspect]
     Active Substance: MORPHINE SULFATE
     Indication: INTERVERTEBRAL DISC DISORDER
     Dosage: 30 MG, BID
     Route: 048
     Dates: start: 2007
  2. MORPHINE SULFATE EXTENDED-RELEASE TABLETS (RHODES 74-769, 74-862) [Suspect]
     Active Substance: MORPHINE SULFATE
     Indication: PAIN
     Dosage: 15 MG, BID
     Route: 048

REACTIONS (6)
  - Vertebral osteophyte [Unknown]
  - Unevaluable event [Unknown]
  - Intervertebral disc protrusion [Unknown]
  - Spinal column injury [Unknown]
  - Drug ineffective [Unknown]
  - Drug tolerance [Unknown]
